FAERS Safety Report 5427075-5 (Version None)
Quarter: 2007Q3

REPORT INFORMATION
  Report Type: 
  Country: None (occurrence: None)
  Receive Date: 20070824
  Receipt Date: 20070824
  Transmission Date: 20080115
  Serious: Yes (Hospitalization)
  Sender: FDA-Public Use
  Company Number: None

PATIENT
  Sex: Male
  Weight: 103 kg

DRUGS (12)
  1. TACROLIMUS [Suspect]
     Indication: IMMUNOSUPPRESSION
     Dosage: 2MG PO Q12HRS
     Route: 048
     Dates: start: 20070305, end: 20070307
  2. MYCOPHENOLATE MOFETIL [Concomitant]
  3. PREDNISONE [Concomitant]
  4. NYSTATIN [Concomitant]
  5. INSULIN [Concomitant]
  6. VALGANCICLOVIR HCL [Concomitant]
  7. LEVOFLOXACIN [Concomitant]
  8. MORPHINE [Concomitant]
  9. RANITIDINE [Concomitant]
  10. AMIODARONE [Concomitant]
  11. MILRINONE [Concomitant]
  12. EPINEPHRINE [Concomitant]

REACTIONS (3)
  - BLOOD CREATININE INCREASED [None]
  - HAEMODIALYSIS [None]
  - POST PROCEDURAL COMPLICATION [None]
